FAERS Safety Report 5649252-0 (Version None)
Quarter: 2008Q1

REPORT INFORMATION
  Report Type: 
  Country: None (occurrence: None)
  Receive Date: 20080304
  Receipt Date: 20071201
  Transmission Date: 20080703
  Serious: No
  Sender: FDA-Public Use
  Company Number: US-BAYER-200715850NA

PATIENT
  Age: 57 Year
  Sex: Female
  Weight: 64 kg

DRUGS (4)
  1. ULTRAVIST PHARMACY BULK PACKAGE 300 [Suspect]
     Indication: COMPUTERISED TOMOGRAM
     Dosage: UNIT DOSE: 90 ML
     Route: 042
     Dates: start: 20071201, end: 20071201
  2. NIFEDIPINE [Concomitant]
  3. LISINOPRIL [Concomitant]
  4. READI-CAT [Concomitant]

REACTIONS (1)
  - EYE SWELLING [None]
